FAERS Safety Report 20139740 (Version 2)
Quarter: 2022Q1

REPORT INFORMATION
  Report Type: Spontaneous
  Country: PT (occurrence: PT)
  Receive Date: 20211202
  Receipt Date: 20220131
  Transmission Date: 20220423
  Serious: Yes (Disabling, Other)
  Sender: FDA-Public Use
  Company Number: None

PATIENT
  Sex: Female

DRUGS (2)
  1. LYRICA [Suspect]
     Active Substance: PREGABALIN
     Indication: Pain
     Dosage: 75 MG, 1X/DAY
     Route: 048
     Dates: start: 20211015, end: 20211025
  2. NIMESULIDE [Concomitant]
     Active Substance: NIMESULIDE
     Dosage: UNK

REACTIONS (5)
  - Arthralgia [Recovered/Resolved]
  - Syncope [Recovered/Resolved]
  - Oedema peripheral [Recovered/Resolved]
  - Pain [Recovered/Resolved]
  - Formication [Recovered/Resolved]

NARRATIVE: CASE EVENT DATE: 20211020
